FAERS Safety Report 7985855-6 (Version None)
Quarter: 2011Q4

REPORT INFORMATION
  Report Type: 
  Country: None (occurrence: None)
  Receive Date: 20111216
  Receipt Date: 20111205
  Transmission Date: 20120403
  Serious: Yes (Life-Threatening, Hospitalization, Disabling, Other)
  Sender: FDA-Public Use
  Company Number: US-PFIZER INC-2011159901

PATIENT
  Sex: Male
  Weight: 126.53 kg

DRUGS (6)
  1. FANAPT [Concomitant]
     Dosage: UNK
  2. IMIPRAMINE [Concomitant]
     Dosage: UNK
  3. PRISTIQ [Suspect]
     Indication: BIPOLAR I DISORDER
     Dosage: 50 MG, 1X/DAY
     Route: 048
     Dates: start: 20100701
  4. PRISTIQ [Suspect]
     Indication: DEPRESSION
  5. DEPAKOTE [Concomitant]
     Dosage: UNK
  6. DEPLIN [Concomitant]
     Dosage: UNK

REACTIONS (9)
  - DEPRESSION [None]
  - ANXIETY [None]
  - RESPIRATORY FAILURE [None]
  - CONDITION AGGRAVATED [None]
  - ASTHENIA [None]
  - FLASHBACK [None]
  - PNEUMONIA [None]
  - SOMNOLENCE [None]
  - BIPOLAR DISORDER [None]
